FAERS Safety Report 6303724-4 (Version None)
Quarter: 2009Q3

REPORT INFORMATION
  Report Type: 
  Country: None (occurrence: None)
  Receive Date: 20090810
  Receipt Date: 20090726
  Transmission Date: 20100115
  Serious: Yes (Other)
  Sender: FDA-Public Use
  Company Number: GB-ROCHE-647356

PATIENT
  Age: 49 Year
  Sex: Male

DRUGS (1)
  1. TAMIFLU [Suspect]
     Route: 065

REACTIONS (5)
  - CONFUSIONAL STATE [None]
  - DIARRHOEA [None]
  - HALLUCINATION [None]
  - INSOMNIA [None]
  - VOMITING [None]
